FAERS Safety Report 16897864 (Version 1)
Quarter: 2019Q4

REPORT INFORMATION
  Report Type: Spontaneous
  Country: DE (occurrence: DE)
  Receive Date: 20191009
  Receipt Date: 20191009
  Transmission Date: 20200122
  Serious: Yes (Other)
  Sender: FDA-Public Use
  Company Number: DE-AUROBINDO-AUR-APL-2018-031335

PATIENT
  Sex: Female
  Weight: 74 kg

DRUGS (3)
  1. KISQALI [Suspect]
     Active Substance: RIBOCICLIB
     Indication: BREAST CANCER METASTATIC
     Dosage: 600 MILLIGRAM, CYCLICAL (21D/7D OFF-TREATMENT SCHEDULE)
     Route: 048
     Dates: start: 20180106, end: 20180223
  2. LETROZOLE. [Suspect]
     Active Substance: LETROZOLE
     Indication: BREAST CANCER METASTATIC
     Dosage: 2.5 MILLIGRAM, ONCE A DAY
     Route: 048
     Dates: start: 20180106, end: 20180328
  3. ESTROGEN [Concomitant]
     Active Substance: ESTROGENS
     Indication: BREAST CANCER METASTATIC
     Dosage: 500 MILLIGRAM, EVERY 4 WEEKS
     Route: 030
     Dates: start: 20190729

REACTIONS (2)
  - Malignant neoplasm progression [Not Recovered/Not Resolved]
  - Breast cancer metastatic [Not Recovered/Not Resolved]

NARRATIVE: CASE EVENT DATE: 20180322
